FAERS Safety Report 24456624 (Version 1)
Quarter: 2024Q4

REPORT INFORMATION
  Report Type: Report from Study
  Country: IT (occurrence: IT)
  Receive Date: 20241017
  Receipt Date: 20241017
  Transmission Date: 20250114
  Serious: Yes (Hospitalization)
  Sender: ABBVIE
  Company Number: IT-ABBVIE-5960251

PATIENT
  Age: 73 Year
  Sex: Male
  Weight: 45.8 kg

DRUGS (10)
  1. RISANKIZUMAB [Suspect]
     Active Substance: RISANKIZUMAB
     Indication: Crohn^s disease
     Dosage: 360 MG
     Route: 058
     Dates: start: 20240724
  2. TACHIPIRINA [Concomitant]
     Active Substance: ACETAMINOPHEN
     Indication: Arthritis
     Dosage: 1000 MG/FREQUENCY TEXT: DAILY
     Route: 048
  3. CHOLECALCIFEROL [Concomitant]
     Active Substance: CHOLECALCIFEROL
     Indication: Bone disorder
     Dosage: 25000 UI/FREQUENCY TEXT: VIAL; ONCE PER MONTH
     Route: 048
  4. POTASSIUM [Concomitant]
     Active Substance: POTASSIUM
     Indication: Product used for unknown indication
     Dosage: 500 MG/FREQUENCY TEXT: ONCE PER DAY
     Route: 048
  5. Tobetin [Concomitant]
     Indication: Product used for unknown indication
     Dosage: 5000 UI/FREQUENCY TEXT: ONCE/3 MONTHS
  6. Folina [Concomitant]
     Indication: Product used for unknown indication
     Dosage: ONE WEEK EVERY 3 MONTHS
  7. RISANKIZUMAB [Suspect]
     Active Substance: RISANKIZUMAB
     Indication: Crohn^s disease
     Route: 042
     Dates: start: 20240124, end: 20240124
  8. RISANKIZUMAB [Suspect]
     Active Substance: RISANKIZUMAB
     Indication: Crohn^s disease
     Route: 042
     Dates: start: 20240319, end: 20240319
  9. RISANKIZUMAB [Suspect]
     Active Substance: RISANKIZUMAB
     Indication: Crohn^s disease
     Route: 042
     Dates: start: 202402, end: 202402
  10. TAPAZOLE [Concomitant]
     Active Substance: METHIMAZOLE
     Indication: Hypothyroidism
     Dosage: FREQUENCY TEXT: 1 TABLET ON EVEN DAYS, 2 TAB ON ODD DAYS

REACTIONS (7)
  - Crohn^s disease [Recovered/Resolved]
  - Diarrhoea [Recovering/Resolving]
  - Abdominal pain [Recovering/Resolving]
  - Abdominal distension [Recovering/Resolving]
  - Weight decreased [Recovering/Resolving]
  - Vomiting [Recovering/Resolving]
  - Decreased appetite [Recovering/Resolving]

NARRATIVE: CASE EVENT DATE: 20240407
